FAERS Safety Report 8493793-8 (Version None)
Quarter: 2012Q3

REPORT INFORMATION
  Report Type: 
  Country: None (occurrence: None)
  Receive Date: 20120706
  Receipt Date: 20120417
  Transmission Date: 20120928
  Serious: Yes (Death, Hospitalization)
  Sender: FDA-Public Use
  Company Number: VN-BAXTER-2012BAX010287

PATIENT
  Sex: Female

DRUGS (2)
  1. DIANEAL [Suspect]
     Route: 033
     Dates: start: 20070124
  2. DIANEAL [Suspect]
     Route: 033
     Dates: start: 20070124

REACTIONS (2)
  - PULMONARY OEDEMA [None]
  - CARDIAC FAILURE [None]
